FAERS Safety Report 7949442-8 (Version None)
Quarter: 2011Q4

REPORT INFORMATION
  Report Type: 
  Country: None (occurrence: None)
  Receive Date: 20111130
  Receipt Date: 20111117
  Transmission Date: 20120403
  Serious: Yes (Other)
  Sender: FDA-Public Use
  Company Number: BR-GLAXOSMITHKLINE-A0955803A

PATIENT
  Sex: Male
  Weight: 70 kg

DRUGS (2)
  1. BEROTEC [Concomitant]
     Indication: BRONCHITIS
     Route: 055
     Dates: start: 20111017
  2. ALBUTEROL [Suspect]
     Indication: BRONCHITIS
     Route: 065
     Dates: start: 20111017

REACTIONS (3)
  - DYSPNOEA [None]
  - EPILEPSY [None]
  - DRUG INEFFECTIVE [None]
